FAERS Safety Report 15207963 (Version 2)
Quarter: 2018Q3

REPORT INFORMATION
  Report Type: Report from Study
  Country: US (occurrence: US)
  Receive Date: 20180727
  Receipt Date: 20180731
  Transmission Date: 20181010
  Serious: Yes (Hospitalization)
  Sender: FDA-Public Use
  Company Number: US-JNJFOC-20180729436

PATIENT
  Age: 18 Year
  Sex: Male
  Weight: 41.3 kg

DRUGS (4)
  1. SIMPONI [Concomitant]
     Active Substance: GOLIMUMAB
     Route: 058
     Dates: start: 20160720
  2. REMICADE [Suspect]
     Active Substance: INFLIXIMAB
     Indication: INFLAMMATORY BOWEL DISEASE
     Route: 042
     Dates: start: 20080117, end: 20081010
  3. REMICADE [Suspect]
     Active Substance: INFLIXIMAB
     Indication: INFLAMMATORY BOWEL DISEASE
     Route: 042
     Dates: start: 20151120, end: 20160510
  4. OMALIZUMAB. [Concomitant]
     Active Substance: OMALIZUMAB
     Route: 065
     Dates: start: 20170501

REACTIONS (1)
  - Jejunal ulcer [Recovered/Resolved]

NARRATIVE: CASE EVENT DATE: 20180713
